FAERS Safety Report 16738936 (Version 3)
Quarter: 2019Q3

REPORT INFORMATION
  Report Type: Report from Study
  Country: None (occurrence: NL)
  Receive Date: 20190826
  Receipt Date: 20190912
  Transmission Date: 20191005
  Serious: Yes (Hospitalization)
  Sender: FDA-Public Use
  Company Number: NL-ABBVIE-19K-114-2899871-00

PATIENT
  Sex: Male

DRUGS (1)
  1. DUODOPA [Suspect]
     Active Substance: CARBIDOPA\LEVODOPA
     Indication: PARKINSON^S DISEASE
     Dosage: MD 10.5, CD 2.4, ED 1.5
     Route: 050
     Dates: start: 20190603

REACTIONS (7)
  - On and off phenomenon [Unknown]
  - Pain [Not Recovered/Not Resolved]
  - Hip arthroplasty [Unknown]
  - Post procedural infection [Recovering/Resolving]
  - Mobility decreased [Unknown]
  - Medical device site joint inflammation [Unknown]
  - Bacterial infection [Recovering/Resolving]

NARRATIVE: CASE EVENT DATE: 2019
